FAERS Safety Report 12145320 (Version 1)
Quarter: 2016Q1

REPORT INFORMATION
  Report Type: Spontaneous
  Country: US (occurrence: US)
  Receive Date: 20160304
  Receipt Date: 20160304
  Transmission Date: 20160526
  Serious: No
  Sender: FDA-Public Use
  Company Number: US-TEVA-574528USA

PATIENT
  Sex: Female

DRUGS (2)
  1. AFINITOR [Suspect]
     Active Substance: EVEROLIMUS
     Dates: start: 20150511
  2. TAMOXIFEN [Suspect]
     Active Substance: TAMOXIFEN
     Route: 065

REACTIONS (2)
  - Drug ineffective [Unknown]
  - Blood glucose increased [Not Recovered/Not Resolved]
